FAERS Safety Report 14806290 (Version 2)
Quarter: 2018Q2

REPORT INFORMATION
  Report Type: Spontaneous
  Country: FR (occurrence: FR)
  Receive Date: 20180425
  Receipt Date: 20180607
  Transmission Date: 20180711
  Serious: Yes (Death, Hospitalization)
  Sender: FDA-Public Use
  Company Number: FR-PFIZER INC-2018168868

PATIENT
  Age: 62 Year
  Sex: Male
  Weight: 95 kg

DRUGS (5)
  1. SOLU-MEDROL [Suspect]
     Active Substance: METHYLPREDNISOLONE SODIUM SUCCINATE
     Dosage: 120 MG, UNK
     Route: 041
     Dates: start: 20180205, end: 20180205
  2. VINORELBINE TARTRATE. [Suspect]
     Active Substance: VINORELBINE TARTRATE
     Dosage: 30 MG, SINGLE
     Route: 041
     Dates: start: 20180205, end: 20180205
  3. CISPLATIN. [Suspect]
     Active Substance: CISPLATIN
     Dosage: 160 MG, SINGLE
     Route: 041
     Dates: start: 20180205, end: 20180205
  4. ZOPHREN [Suspect]
     Active Substance: ONDANSETRON
     Dosage: 8 MG, UNK
     Route: 041
     Dates: start: 20180205, end: 20180205
  5. PLITICAN [Suspect]
     Active Substance: ALIZAPRIDE HYDROCHLORIDE
     Dosage: 200 MG, UNK
     Route: 041
     Dates: start: 20180205, end: 20180205

REACTIONS (1)
  - Cardio-respiratory arrest [Fatal]

NARRATIVE: CASE EVENT DATE: 20180205
